FAERS Safety Report 5093481-4 (Version None)
Quarter: 2006Q3

REPORT INFORMATION
  Report Type: 
  Country: None (occurrence: None)
  Receive Date: 20060829
  Receipt Date: 20060822
  Transmission Date: 20061208
  Serious: Yes (Hospitalization, Disabling)
  Sender: FDA-Public Use
  Company Number: TAP2006Q01433

PATIENT
  Age: 63 Year
  Sex: Male
  Weight: 71.7 kg

DRUGS (9)
  1. LUPRON DEPOT-4 [Suspect]
     Indication: PROSTATE CANCER
     Dosage: 30 MG, 1 IN 1 4 M, INTRA-MUSCULAR
     Route: 030
     Dates: start: 20040101, end: 20060725
  2. DITROPAN [Suspect]
     Indication: URINARY INCONTINENCE
     Dosage: 10 MG, 1 IN 1 D, ORAL
     Route: 048
  3. SINEMET [Concomitant]
  4. LIPITOR [Concomitant]
  5. PLAVIX [Concomitant]
  6. TOPROL-XL [Concomitant]
  7. GLYBURIDE [Concomitant]
  8. LANOXIN [Concomitant]
  9. NAMENDA [Concomitant]

REACTIONS (3)
  - ABASIA [None]
  - INJECTION SITE PAIN [None]
  - OSTEOPOROSIS [None]
